FAERS Safety Report 10334721 (Version 1)
Quarter: 2014Q3

REPORT INFORMATION
  Report Type: Spontaneous
  Country: US (occurrence: None)
  Receive Date: 20140721
  Receipt Date: 20140721
  Transmission Date: 20150326
  Serious: Yes (Hospitalization, Other)
  Sender: FDA-Public Use
  Company Number: US-ZYDUS-004107

PATIENT
  Age: 57 Year
  Sex: Male

DRUGS (1)
  1. WARFARIN [Suspect]
     Active Substance: WARFARIN
     Indication: ANTICOAGULANT THERAPY

REACTIONS (6)
  - International normalised ratio increased [None]
  - Epistaxis [None]
  - Toxicity to various agents [None]
  - Retroperitoneal haematoma [None]
  - Gingival bleeding [None]
  - Ecchymosis [None]
